FAERS Safety Report 24936857 (Version 2)
Quarter: 2025Q1

REPORT INFORMATION
  Report Type: Spontaneous
  Country: RO (occurrence: RO)
  Receive Date: 20250206
  Receipt Date: 20250208
  Transmission Date: 20250409
  Serious: Yes (Death, Other)
  Sender: TAKEDA
  Company Number: RO-TAKEDA-2025TUS012777

PATIENT
  Age: 64 Year
  Sex: Female

DRUGS (1)
  1. ALUNBRIG [Suspect]
     Active Substance: BRIGATINIB
     Indication: Non-small cell lung cancer

REACTIONS (1)
  - Cardiac failure [Fatal]
